FAERS Safety Report 18780587 (Version 1)
Quarter: 2021Q1

REPORT INFORMATION
  Report Type: Spontaneous
  Country: US (occurrence: US)
  Receive Date: 20210122
  Receipt Date: 20210122
  Transmission Date: 20210419
  Serious: No
  Sender: FDA-Public Use
  Company Number: None

PATIENT
  Age: 54 Year
  Sex: Male
  Weight: 93.89 kg

DRUGS (2)
  1. OCREVUS [Suspect]
     Active Substance: OCRELIZUMAB
     Indication: MULTIPLE SCLEROSIS
     Dosage: FREQUENCY:  Q6MO
     Route: 042
  2. OCREVUS 600 MG [Concomitant]

REACTIONS (6)
  - Headache [None]
  - Infusion related reaction [None]
  - Flushing [None]
  - Pain [None]
  - Body temperature increased [None]
  - Refusal of treatment by patient [None]

NARRATIVE: CASE EVENT DATE: 20201027
